FAERS Safety Report 4559779-0 (Version None)
Quarter: 2005Q1

REPORT INFORMATION
  Report Type: 
  Country: None (occurrence: None)
  Receive Date: 20050106
  Receipt Date: 20040715
  Transmission Date: 20050727
  Serious: Yes (Disabling)
  Sender: FDA-Public Use
  Company Number: WAES 0407USA01358

PATIENT
  Age: 76 Year
  Sex: Male

DRUGS (6)
  1. TIMOPTIC-XE [Suspect]
     Indication: GLAUCOMA
     Dosage: 2 DROPS/DAILY/OPHT
     Route: 047
  2. COZAAR [Concomitant]
  3. NEURONTIN [Concomitant]
  4. PREVACID [Concomitant]
  5. SYNTHROID [Concomitant]
  6. FUROSEMIDE [Concomitant]

REACTIONS (2)
  - EYE IRRITATION [None]
  - VISUAL ACUITY REDUCED [None]
